FAERS Safety Report 12463467 (Version 1)
Quarter: 2016Q2

REPORT INFORMATION
  Report Type: Spontaneous
  Country: DE (occurrence: DE)
  Receive Date: 20160614
  Receipt Date: 20160614
  Transmission Date: 20160815
  Serious: Yes (Hospitalization)
  Sender: FDA-Public Use
  Company Number: DE-DRREDDYS-GER/GER/16/0080406

PATIENT
  Age: 39 Year
  Sex: Female

DRUGS (10)
  1. SEROQUEL XR [Suspect]
     Active Substance: QUETIAPINE FUMARATE
     Route: 048
     Dates: start: 20160209
  2. RISPERIDON [Suspect]
     Active Substance: RISPERIDONE
     Route: 048
     Dates: start: 20160126, end: 20160222
  3. RISPERIDON [Suspect]
     Active Substance: RISPERIDONE
     Route: 048
     Dates: start: 20160229, end: 20160301
  4. SEROQUEL XR [Suspect]
     Active Substance: QUETIAPINE FUMARATE
     Indication: PRODUCT USED FOR UNKNOWN INDICATION
     Route: 048
     Dates: start: 20151228, end: 20160208
  5. SEROQUEL XR [Suspect]
     Active Substance: QUETIAPINE FUMARATE
     Route: 048
     Dates: start: 20160210
  6. RISPERIDON [Suspect]
     Active Substance: RISPERIDONE
     Route: 048
     Dates: start: 20160121, end: 20160125
  7. VENLAFAXINE [Suspect]
     Active Substance: VENLAFAXINE HYDROCHLORIDE
     Indication: PRODUCT USED FOR UNKNOWN INDICATION
     Route: 048
     Dates: start: 20151228
  8. RISPERIDON [Suspect]
     Active Substance: RISPERIDONE
     Indication: PRODUCT USED FOR UNKNOWN INDICATION
     Route: 048
     Dates: start: 20151228, end: 20160120
  9. RISPERIDON [Suspect]
     Active Substance: RISPERIDONE
     Route: 048
     Dates: start: 20160223, end: 20160228
  10. RISPERIDON [Suspect]
     Active Substance: RISPERIDONE
     Route: 048
     Dates: start: 20160302, end: 20160303

REACTIONS (1)
  - Parkinsonism [Recovered/Resolved]

NARRATIVE: CASE EVENT DATE: 20160116
